FAERS Safety Report 7973638-2 (Version None)
Quarter: 2011Q4

REPORT INFORMATION
  Report Type: 
  Country: None (occurrence: None)
  Receive Date: 20111123
  Receipt Date: 20110601
  Transmission Date: 20120403
  Serious: Yes (Other)
  Sender: FDA-Public Use
  Company Number: US201106-0151-1

PATIENT
  Age: 56 Year
  Sex: Female

DRUGS (1)
  1. ISOSULFAN BLUE [Suspect]
     Dosage: SUBAREOLAR SPACE

REACTIONS (1)
  - UNEVALUABLE EVENT [None]
